FAERS Safety Report 4474159-4 (Version None)
Quarter: 2004Q4

REPORT INFORMATION
  Report Type: 
  Country: None (occurrence: None)
  Receive Date: 20041008
  Receipt Date: 20040910
  Transmission Date: 20050328
  Serious: Yes (Death)
  Sender: FDA-Public Use
  Company Number: 8871

PATIENT
  Age: 60 Year
  Sex: Female

DRUGS (4)
  1. METHOTREXATE [Suspect]
     Indication: CROHN'S DISEASE
     Dosage: 25 MG FREQ
     Route: 030
     Dates: start: 19980821, end: 19980821
  2. MAETAMIZOLE SODIUM [Suspect]
     Route: 048
  3. AZATHIOPRINE [Concomitant]
  4. METHYLPREDNISOLONE SODIUM SUCCINATE [Concomitant]

REACTIONS (6)
  - ACUTE RESPIRATORY DISTRESS SYNDROME [None]
  - BONE MARROW DEPRESSION [None]
  - DRUG INTERACTION [None]
  - GENERAL PHYSICAL HEALTH DETERIORATION [None]
  - HYPOVOLAEMIC SHOCK [None]
  - SEPTIC SHOCK [None]
